FAERS Safety Report 8853946 (Version 1)
Quarter: 2012Q4

REPORT INFORMATION
  Report Type: 
  Country: DE (occurrence: DE)
  Receive Date: 20121022
  Receipt Date: 20121022
  Transmission Date: 20130627
  Serious: Yes (Hospitalization, Other)
  Sender: FDA-Public Use
  Company Number: PHHY2012DE086623

PATIENT
  Sex: Male

DRUGS (3)
  1. AREDIA [Suspect]
     Indication: METASTASIS
     Dosage: 90 mg, every 4 weeks
     Route: 042
  2. AREDIA [Suspect]
     Dosage: 90 mg, every 4 weeks
     Route: 042
     Dates: start: 20120922, end: 20120922
  3. CHEMOTHERAPEUTICS [Concomitant]
     Dosage: UNK UKN, UNK

REACTIONS (4)
  - Necrosis [Recovered/Resolved]
  - Phlebitis [Recovered/Resolved]
  - Injection site extravasation [Recovered/Resolved]
  - Skin reaction [Recovered/Resolved]
